FAERS Safety Report 9783160 (Version 1)
Quarter: 2013Q4

REPORT INFORMATION
  Report Type: Spontaneous
  Country: US (occurrence: None)
  Receive Date: 20131223
  Receipt Date: 20131223
  Transmission Date: 20140711
  Serious: No
  Sender: FDA-Public Use
  Company Number: EUS-2012-00018

PATIENT
  Age: 12 Year
  Sex: Male

DRUGS (6)
  1. ERWINASE [Suspect]
     Indication: ACUTE LYMPHOCYTIC LEUKAEMIA
     Dosage: 32500 IU, ON 13,17,20 AND 22 JUN 2011
     Route: 030
     Dates: start: 20110613, end: 20110622
  2. CYCLOPHOSPHAMIDE [Concomitant]
  3. VINCRISTINE [Concomitant]
  4. MERCAPTOPURINE [Concomitant]
  5. CYTARABINE [Concomitant]
  6. METHOTREXATE [Concomitant]

REACTIONS (1)
  - Drug hypersensitivity [None]
